FAERS Safety Report 22115881 (Version 1)
Quarter: 2023Q1

REPORT INFORMATION
  Report Type: Spontaneous
  Country: GR (occurrence: GR)
  Receive Date: 20230320
  Receipt Date: 20230320
  Transmission Date: 20230417
  Serious: No
  Sender: FDA-Public Use
  Company Number: GR-PFIZER INC-PV202300044515

PATIENT
  Age: 13 Year
  Sex: Female

DRUGS (1)
  1. GENOTROPIN [Suspect]
     Active Substance: SOMATROPIN
     Indication: Growth hormone deficiency
     Dosage: 1,2MG/ 7 DAYS/12 MG PEN
     Route: 058
     Dates: start: 202301

REACTIONS (3)
  - Device issue [Unknown]
  - Product preparation error [Unknown]
  - Drug dose omission by device [Unknown]
